FAERS Safety Report 4541141-8 (Version None)
Quarter: 2004Q4

REPORT INFORMATION
  Report Type: 
  Country: None (occurrence: None)
  Receive Date: 20041228
  Receipt Date: 20041216
  Transmission Date: 20050328
  Serious: No
  Sender: FDA-Public Use
  Company Number: 2004UW25847

PATIENT
  Age: 74 Year
  Sex: Female
  Weight: 68.038 kg

DRUGS (17)
  1. SEROQUEL [Suspect]
     Indication: BIPOLAR DISORDER
     Dosage: 25 MG PO
     Route: 048
     Dates: start: 20041025
  2. EVISTA [Concomitant]
  3. NEXIUM [Concomitant]
  4. TRAZODONE HCL [Concomitant]
  5. ARICEPT [Concomitant]
  6. GLUCOSAMINE [Concomitant]
  7. MULTIVITAMIN [Concomitant]
  8. ALEVE [Concomitant]
  9. ZYRTEC-D 12 HOUR [Concomitant]
  10. LASIX [Concomitant]
  11. POTASSIUM [Concomitant]
  12. ARTHROTEC [Concomitant]
  13. LORAZEPAM [Concomitant]
  14. ASTELIN [Concomitant]
  15. RHINOCORT [Concomitant]
  16. DEPAKOTE [Concomitant]
  17. LORTAB [Concomitant]

REACTIONS (1)
  - HUNTINGTON'S CHOREA [None]
